FAERS Safety Report 7688729-3 (Version None)
Quarter: 2011Q3

REPORT INFORMATION
  Report Type: 
  Country: None (occurrence: None)
  Receive Date: 20110817
  Receipt Date: 20110811
  Transmission Date: 20111222
  Serious: Yes (Other)
  Sender: FDA-Public Use
  Company Number: ES-GLAXOSMITHKLINE-B0740088A

PATIENT
  Age: 74 Year
  Sex: Male

DRUGS (5)
  1. BIVALIRUDIN [Suspect]
     Indication: PERCUTANEOUS CORONARY INTERVENTION
     Route: 042
     Dates: start: 20110511, end: 20110511
  2. ASPIRIN [Suspect]
     Indication: ACUTE CORONARY SYNDROME
     Dosage: 100MG PER DAY
     Route: 048
     Dates: start: 20110511, end: 20110511
  3. ARIXTRA [Suspect]
     Indication: PERCUTANEOUS CORONARY INTERVENTION
     Dosage: 2.5MG PER DAY
     Route: 058
     Dates: start: 20110511, end: 20110511
  4. PLAVIX [Suspect]
     Indication: ACUTE CORONARY SYNDROME
     Dosage: 300MG PER DAY
     Route: 048
     Dates: start: 20110511, end: 20110511
  5. PANTOPRAZOLE [Concomitant]
     Route: 042

REACTIONS (3)
  - ANAEMIA [None]
  - COAGULOPATHY [None]
  - DRUG INTERACTION [None]
